FAERS Safety Report 20838014 (Version 1)
Quarter: 2022Q2

REPORT INFORMATION
  Report Type: Spontaneous
  Country: US (occurrence: US)
  Receive Date: 20220517
  Receipt Date: 20220517
  Transmission Date: 20220721
  Serious: No
  Sender: FDA-Public Use
  Company Number: US-ALLERGAN-2136942US

PATIENT
  Age: 28 Year
  Sex: Female

DRUGS (2)
  1. KYBELLA [Suspect]
     Active Substance: DEOXYCHOLIC ACID
     Indication: Lipolysis procedure
     Dosage: 2 ML, SINGLE
     Route: 058
     Dates: start: 20210626, end: 20210626
  2. KYBELLA [Suspect]
     Active Substance: DEOXYCHOLIC ACID
     Dosage: 2 ML, SINGLE
     Route: 058
     Dates: start: 20210416, end: 20210416

REACTIONS (3)
  - Condition aggravated [Not Recovered/Not Resolved]
  - Skin laxity [Not Recovered/Not Resolved]
  - Swelling [Recovering/Resolving]

NARRATIVE: CASE EVENT DATE: 20210416
